FAERS Safety Report 16158575 (Version 1)
Quarter: 2019Q2

REPORT INFORMATION
  Report Type: Spontaneous
  Country: US (occurrence: US)
  Receive Date: 20190404
  Receipt Date: 20190404
  Transmission Date: 20190711
  Serious: Yes (Other)
  Sender: FDA-Public Use
  Company Number: US-SA-2019SA091584

PATIENT
  Age: 65 Year
  Sex: Female

DRUGS (1)
  1. NICOTINE. [Suspect]
     Active Substance: NICOTINE
     Indication: SMOKING CESSATION THERAPY
     Dosage: 14 MG

REACTIONS (7)
  - Hyperhidrosis [Recovered/Resolved]
  - Anxiety [Unknown]
  - Feeling hot [Recovered/Resolved]
  - Palpitations [Recovered/Resolved]
  - Limb discomfort [Recovered/Resolved]
  - Nausea [Recovered/Resolved]
  - Loss of consciousness [Recovered/Resolved]
